FAERS Safety Report 10203545 (Version 1)
Quarter: 2014Q2

REPORT INFORMATION
  Report Type: Spontaneous
  Country: US (occurrence: None)
  Receive Date: 20140523
  Receipt Date: 20140523
  Transmission Date: 20141212
  Serious: Yes (Life-Threatening, Hospitalization)
  Sender: FDA-Public Use
  Company Number: 2014P1004266

PATIENT
  Age: 20 Year
  Sex: Male

DRUGS (2)
  1. CITALOPRAM [Suspect]
  2. DOXEPIN [Suspect]

REACTIONS (11)
  - Unresponsive to stimuli [None]
  - Hypotension [None]
  - Tachycardia [None]
  - Generalised tonic-clonic seizure [None]
  - Cardiac arrest [None]
  - Haemodynamic instability [None]
  - Electrocardiogram QT prolonged [None]
  - Ventricular extrasystoles [None]
  - Blood pH increased [None]
  - Pancreatitis [None]
  - Pseudocyst [None]
